FAERS Safety Report 19103203 (Version 6)
Quarter: 2021Q2

REPORT INFORMATION
  Report Type: Spontaneous
  Country: FR (occurrence: FR)
  Receive Date: 20210407
  Receipt Date: 20210625
  Transmission Date: 20210717
  Serious: Yes (Other)
  Sender: FDA-Public Use
  Company Number: FR-ORGANON-2009FRA007487

PATIENT
  Age: 28 Year
  Sex: Female
  Weight: 56 kg

DRUGS (2)
  1. NEXPLANON [Suspect]
     Active Substance: ETONOGESTREL
     Dosage: 1 IMPLANT, IN RIGHT ARM
     Route: 059
     Dates: start: 20180706
  2. NEXPLANON [Suspect]
     Active Substance: ETONOGESTREL
     Dosage: 1 IMPLANT
     Route: 059
     Dates: end: 20180706

REACTIONS (10)
  - Menstruation irregular [Not Recovered/Not Resolved]
  - Wrong technique in product usage process [Unknown]
  - Caesarean section [Recovered/Resolved]
  - Pregnancy with implant contraceptive [Recovered/Resolved]
  - Anxiety [Unknown]
  - Device dislocation [Not Recovered/Not Resolved]
  - Intellectual disability [Unknown]
  - Unintended pregnancy [Recovered/Resolved]
  - HELLP syndrome [Unknown]
  - Complication associated with device [Unknown]

NARRATIVE: CASE EVENT DATE: 202005
